FAERS Safety Report 16839700 (Version 1)
Quarter: 2019Q3

REPORT INFORMATION
  Report Type: Spontaneous
  Country: US (occurrence: US)
  Receive Date: 20190801
  Receipt Date: 20190801
  Transmission Date: 20191005
  Serious: Yes (Hospitalization)
  Sender: FDA-Public Use
  Company Number: None

PATIENT
  Age: 17 Year
  Sex: Female

DRUGS (18)
  1. BACTROBAN CRE [Concomitant]
  2. CIPRODEX SUS [Concomitant]
  3. EPIDIOLEX [Concomitant]
     Active Substance: CANNABIDIOL
  4. NOVOLOG [Concomitant]
     Active Substance: INSULIN ASPART
  5. LANTUS SOLOS INJ [Concomitant]
  6. METAMUCIL [Concomitant]
     Active Substance: PLANTAGO SEED
  7. NYSTATIN. [Concomitant]
     Active Substance: NYSTATIN
  8. PATADAY SOL [Concomitant]
  9. TRAZODONE [Concomitant]
     Active Substance: TRAZODONE HYDROCHLORIDE
  10. NITROFUR MAC [Concomitant]
     Active Substance: NITROFURANTOIN
  11. ROBINUL [Concomitant]
     Active Substance: GLYCOPYRROLATE
  12. CYPROHEPTAD [Concomitant]
  13. DIASTAT ACDL GEL [Concomitant]
  14. MIRALAX [Concomitant]
     Active Substance: POLYETHYLENE GLYCOL 3350
  15. MELATONIN [Concomitant]
     Active Substance: MELATONIN
  16. PREVACID [Concomitant]
     Active Substance: LANSOPRAZOLE
  17. ONFI [Concomitant]
     Active Substance: CLOBAZAM
  18. TOBRAMYCIN MDV 40MG [Suspect]
     Active Substance: TOBRAMYCIN
     Indication: LUNG DISORDER
     Route: 055
     Dates: start: 20170131

REACTIONS (3)
  - Urinary tract infection [None]
  - Ill-defined disorder [None]
  - Pneumonia [None]

NARRATIVE: CASE EVENT DATE: 20190702
